FAERS Safety Report 16714871 (Version 1)
Quarter: 2019Q3

REPORT INFORMATION
  Report Type: Spontaneous
  Country: AU (occurrence: AU)
  Receive Date: 20190819
  Receipt Date: 20190819
  Transmission Date: 20191005
  Serious: Yes (Other)
  Sender: FDA-Public Use
  Company Number: AU-APOTEX-2019AP020571

PATIENT
  Age: 52 Year
  Sex: Female

DRUGS (8)
  1. MYCOPHENOLATE [Suspect]
     Active Substance: MYCOPHENOLIC ACID
     Indication: IMMUNOSUPPRESSION
     Dosage: UNK
     Route: 065
  2. ALLOPURINOL. [Suspect]
     Active Substance: ALLOPURINOL
     Indication: ADENINE PHOSPHORIBOSYL TRANSFERASE DEFICIENCY
     Dosage: 300 MG, QD
     Route: 065
  3. FEBUXOSTAT. [Concomitant]
     Active Substance: FEBUXOSTAT
     Indication: ADENINE PHOSPHORIBOSYL TRANSFERASE DEFICIENCY
     Dosage: 40 MG, QD
     Route: 065
  4. ALLOPURINOL. [Suspect]
     Active Substance: ALLOPURINOL
     Dosage: 200 MG, QD
     Route: 065
  5. TACROLIMUS. [Suspect]
     Active Substance: TACROLIMUS
     Indication: IMMUNOSUPPRESSION
     Dosage: UNK
     Route: 065
  6. ANTITHYMOCYTE IMMUNOGLOBULIN [Concomitant]
     Active Substance: THYMOCYTE IMMUNE GLOBULIN NOS
     Indication: TRANSPLANT REJECTION
     Dosage: 6 MG/KG, TOTAL
     Route: 065
  7. METHYLPREDNISOLONE. [Suspect]
     Active Substance: METHYLPREDNISOLONE
     Indication: TRANSPLANT REJECTION
     Dosage: UNK
     Route: 042
  8. PREDNISOLONE. [Suspect]
     Active Substance: PREDNISOLONE
     Indication: IMMUNOSUPPRESSION
     Dosage: UNK
     Route: 065

REACTIONS (6)
  - Polyomavirus-associated nephropathy [Unknown]
  - Rash [Recovered/Resolved]
  - Cytomegalovirus viraemia [Unknown]
  - Herpes zoster [Unknown]
  - Diarrhoea [Unknown]
  - Urinary tract infection [Unknown]
